FAERS Safety Report 20369156 (Version 1)
Quarter: 2022Q1

REPORT INFORMATION
  Report Type: Spontaneous
  Country: US (occurrence: None)
  Receive Date: 20220122
  Receipt Date: 20220122
  Transmission Date: 20220423
  Serious: Yes (Hospitalization)
  Sender: FDA-Public Use
  Company Number: None

PATIENT
  Age: 15 Year
  Sex: Female

DRUGS (1)
  1. VOTRIENT [Suspect]
     Active Substance: PAZOPANIB HYDROCHLORIDE
     Dosage: 200MG DAILY ORAL?
     Route: 048
     Dates: start: 20211115

REACTIONS (4)
  - Electrocardiogram QT prolonged [None]
  - Palpitations [None]
  - Dizziness [None]
  - Somnolence [None]

NARRATIVE: CASE EVENT DATE: 20220122
